FAERS Safety Report 4273164-0 (Version None)
Quarter: 2004Q1

REPORT INFORMATION
  Report Type: 
  Country: None (occurrence: None)
  Receive Date: 20040116
  Receipt Date: 20031121
  Transmission Date: 20041129
  Serious: Yes (Other)
  Sender: FDA-Public Use
  Company Number: PHEH2003US10766

PATIENT
  Age: 33 Year
  Sex: Female

DRUGS (11)
  1. ZELNORM [Suspect]
     Indication: IRRITABLE BOWEL SYNDROME
     Dosage: 6 MG, BID
     Route: 048
     Dates: start: 20031114, end: 20031119
  2. KEPPRA [Suspect]
     Indication: CONVULSION
     Dosage: 750 MG, BID
     Dates: start: 20030801
  3. CARBATROL [Concomitant]
     Dosage: 300 MG, BID
     Dates: start: 19940101
  4. DILANTIN [Concomitant]
     Dosage: 100 MG, BID
     Dates: start: 19940101
  5. NORCO [Concomitant]
     Indication: STURGE-WEBER SYNDROME
     Dosage: UNK, PRN
     Dates: start: 20021001
  6. BACLOFEN [Concomitant]
     Dosage: UNK, PRN
     Dates: start: 20021001
  7. OXYCONTIN [Concomitant]
     Dosage: UNK, PRN
     Dates: start: 20021101
  8. PERCOCET [Concomitant]
     Dosage: UNK, PRN
     Dates: start: 20031101
  9. PHENOBARBITAL TAB [Concomitant]
     Indication: MIGRAINE
     Dosage: UNK, PRN
     Dates: start: 20030701
  10. DIAZEPAM [Concomitant]
     Indication: CONVULSION
     Dosage: UNK, PRN
  11. PROMETHAZINE [Concomitant]
     Indication: NAUSEA
     Dosage: UNK, PRN
     Dates: start: 20021201

REACTIONS (1)
  - CONVULSION [None]
